FAERS Safety Report 13347313 (Version 8)
Quarter: 2019Q2

REPORT INFORMATION
  Report Type: Report from Study
  Country: ES (occurrence: ES)
  Receive Date: 20170317
  Receipt Date: 20190524
  Transmission Date: 20190711
  Serious: Yes (Death, Life-Threatening, Hospitalization, Other)
  Sender: FDA-Public Use
  Company Number: ES-ASTRAZENECA-2017SE28535

PATIENT
  Age: 25506 Day
  Sex: Female

DRUGS (12)
  1. TAXOL [Suspect]
     Active Substance: PACLITAXEL
     Indication: OVARIAN CANCER
     Dosage: CYCLE 6
     Route: 042
     Dates: start: 20110607, end: 20110923
  2. ELOCOM [Concomitant]
     Active Substance: MOMETASONE FUROATE
     Indication: PAIN IN EXTREMITY
     Route: 003
     Dates: start: 20160530
  3. HEMICRANEAL [Concomitant]
     Indication: MIGRAINE
     Dosage: AS REQUIRED.
     Route: 048
  4. TRYPTIZOL [Concomitant]
     Active Substance: AMITRIPTYLINE HYDROCHLORIDE
     Indication: ARTHROPATHY
     Route: 048
  5. CARBOPLATIN. [Suspect]
     Active Substance: CARBOPLATIN
     Indication: OVARIAN CANCER
     Route: 042
     Dates: start: 20140502, end: 20140922
  6. PACLITAXEL. [Suspect]
     Active Substance: PACLITAXEL
     Indication: OVARIAN CANCER
     Route: 042
     Dates: start: 20110607, end: 20110923
  7. AZD2281 [Suspect]
     Active Substance: OLAPARIB
     Indication: FALLOPIAN TUBE CANCER
     Route: 048
     Dates: start: 20141022, end: 20170124
  8. DOXORUBICIN [Suspect]
     Active Substance: DOXORUBICIN
     Indication: OVARIAN CANCER
     Route: 042
     Dates: start: 20140502, end: 20140922
  9. CAELIX [Suspect]
     Active Substance: DOXORUBICIN HYDROCHLORIDE
     Route: 065
  10. IBUPROFEN. [Concomitant]
     Active Substance: IBUPROFEN
     Indication: ARTHROPATHY
     Dosage: AS REQUIRED.
     Route: 048
  11. NORFLOXACIN [Concomitant]
     Active Substance: NORFLOXACIN
     Indication: INFECTION
     Route: 048
     Dates: start: 20170216, end: 20170222
  12. CARBOPLATIN. [Suspect]
     Active Substance: CARBOPLATIN
     Indication: OVARIAN CANCER
     Route: 042
     Dates: start: 20110607, end: 20110923

REACTIONS (2)
  - Myelodysplastic syndrome [Recovered/Resolved]
  - Acute leukaemia [Fatal]

NARRATIVE: CASE EVENT DATE: 20170316
